FAERS Safety Report 6388417-X (Version None)
Quarter: 2009Q4

REPORT INFORMATION
  Report Type: 
  Country: None (occurrence: None)
  Receive Date: 20091005
  Receipt Date: 20090930
  Transmission Date: 20100525
  Serious: Yes (Hospitalization, Other)
  Sender: FDA-Public Use
  Company Number: US-BRISTOL-MYERS SQUIBB COMPANY-14791917

PATIENT
  Age: 80 Year
  Sex: Male
  Weight: 128 kg

DRUGS (2)
  1. COUMADIN [Suspect]
     Dosage: TABLET
     Route: 048
  2. MAALOX [Interacting]
     Indication: ABDOMINAL DISCOMFORT

REACTIONS (2)
  - DRUG INTERACTION [None]
  - FAECES DISCOLOURED [None]
